FAERS Safety Report 8929366 (Version 3)
Quarter: 2013Q2

REPORT INFORMATION
  Report Type: Report from Study
  Country: FR (occurrence: FR)
  Receive Date: 20121127
  Receipt Date: 20130419
  Transmission Date: 20140414
  Serious: Yes (Hospitalization)
  Sender: FDA-Public Use
  Company Number: FR-BAYER-2012-075620

PATIENT
  Age: 48 Year
  Sex: Female
  Weight: 64 kg

DRUGS (17)
  1. REGORAFENIB [Suspect]
     Indication: COLORECTAL CANCER METASTATIC
     Dosage: DAILY DOSE 160 MG
     Route: 048
     Dates: start: 20120711, end: 20120719
  2. REGORAFENIB [Suspect]
     Indication: COLORECTAL CANCER METASTATIC
     Dosage: DAILY DOSE 120 MG
     Route: 048
     Dates: start: 20120720, end: 20120723
  3. ACUPAN [Concomitant]
     Indication: PALMAR-PLANTAR ERYTHRODYSAESTHESIA SYNDROME
     Dosage: 60 MG, QD
     Route: 042
     Dates: start: 20120725
  4. ACUPAN [Concomitant]
     Indication: PAIN
  5. CORTANCYL [Concomitant]
     Indication: PAIN
     Dosage: 100 MG, QD
     Route: 048
     Dates: start: 20120725
  6. CORTANCYL [Concomitant]
     Indication: PELVIC PAIN
     Dosage: DAILY DOSE 40 MG
     Route: 048
     Dates: start: 201201
  7. GLYCEROL [Concomitant]
     Indication: PALMAR-PLANTAR ERYTHRODYSAESTHESIA SYNDROME
     Dosage: UNK
     Route: 003
     Dates: start: 20120724
  8. PARAFFIN [Concomitant]
     Indication: PALMAR-PLANTAR ERYTHRODYSAESTHESIA SYNDROME
     Dosage: UNK
     Route: 003
     Dates: start: 20120724
  9. LOVENOX [Concomitant]
     Indication: THROMBOSIS PROPHYLAXIS
     Dosage: DAILY DOSE .4 ML
     Route: 058
     Dates: start: 2012
  10. SOMATULINE LP [Concomitant]
     Indication: INTESTINAL OBSTRUCTION
     Dosage: DAILY DOSE 30 MG
     Route: 030
     Dates: start: 201201
  11. PARIET [Concomitant]
     Indication: COLITIS ULCERATIVE
     Dosage: DAILY DOSE 20 MG
     Route: 048
     Dates: start: 2012
  12. STILNOX [Concomitant]
     Indication: INSOMNIA
     Dosage: DAILY DOSE 10 MG
     Route: 048
     Dates: start: 2012
  13. MOVICOL [Concomitant]
     Indication: CONSTIPATION
     Dosage: 2 BAGS 3 TIMES
     Route: 048
     Dates: start: 2012
  14. PARACETAMOL [Concomitant]
     Indication: PELVIC PAIN
     Dosage: DAILY DOSE 4 G
     Route: 048
     Dates: start: 201201
  15. MORPHINE [Concomitant]
     Indication: PELVIC PAIN
     Dosage: 3 MG/H, UNK
     Route: 042
     Dates: start: 201206
  16. AMOXICILLIN [Concomitant]
     Indication: PYELONEPHRITIS ACUTE
     Dosage: UNK
     Route: 048
     Dates: start: 20120731, end: 20120813
  17. TRIFLUCAN [Concomitant]
     Indication: DEVICE RELATED INFECTION
     Dosage: UNK
     Route: 048
     Dates: start: 20120803, end: 20120812

REACTIONS (1)
  - Renal failure acute [Recovered/Resolved]
